FAERS Safety Report 8480308 (Version 2)
Quarter: 2012Q4

REPORT INFORMATION
  Report Type: 
  Country: JP (occurrence: JP)
  Receive Date: 20120328
  Receipt Date: 20121211
  Transmission Date: 20130627
  Serious: Yes (Hospitalization)
  Sender: FDA-Public Use
  Company Number: JP-SHIRE-ALL1-2012-01568

PATIENT
  Age: 38 Year
  Sex: Male

DRUGS (13)
  1. FOSRENOL [Suspect]
     Indication: HYPERPHOSPHATAEMIA
     Dosage: 750 mg, Unknown(after meals, unknown frequency)
     Route: 048
     Dates: start: 20090325, end: 20110323
  2. RENAGEL                            /01459901/ [Concomitant]
     Indication: HYPERPHOSPHATAEMIA
     Dosage: 3750 mg, Unknown
     Route: 048
     Dates: end: 20090715
  3. RENAGEL                            /01459901/ [Concomitant]
     Dosage: 2500 mg, Unknown
     Route: 048
     Dates: start: 20090715, end: 20091007
  4. OXAROL [Concomitant]
     Indication: PRODUCT USED FOR UNKNOWN INDICATION
     Dosage: 25 ?g, 1x/week
     Route: 042
     Dates: end: 20090617
  5. OXAROL [Concomitant]
     Dosage: 15 ?g, 1x/week
     Route: 042
     Dates: start: 20090619, end: 20091014
  6. OXAROL [Concomitant]
     Dosage: 7.5 ?g, 1x/week
     Route: 042
     Dates: start: 20091016
  7. REGPARA [Concomitant]
     Indication: HYPERPARATHYROIDISM SECONDARY
     Dosage: 25 mg, Unknown
     Route: 048
     Dates: start: 20080227, end: 20080910
  8. REGPARA [Concomitant]
     Dosage: 50 mg, Unknown
     Route: 048
     Dates: start: 20080910, end: 20081217
  9. REGPARA [Concomitant]
     Dosage: 25 mg, Unknown
     Route: 048
     Dates: start: 20081217
  10. GASTER [Concomitant]
     Indication: PRODUCT USED FOR UNKNOWN INDICATION
     Dosage: 10 mg, Unknown
     Route: 048
  11. YODEL [Concomitant]
     Indication: PRODUCT USED FOR UNKNOWN INDICATION
     Dosage: 80 mg, Unknown
     Route: 048
  12. ALLOPURINOL [Concomitant]
     Indication: PRODUCT USED FOR UNKNOWN INDICATION
     Dosage: 100 mg, Unknown
     Route: 048
  13. EPOGIN [Concomitant]
     Indication: PRODUCT USED FOR UNKNOWN INDICATION
     Dosage: 750 IU, Unknown
     Route: 042

REACTIONS (4)
  - Convulsion [Not Recovered/Not Resolved]
  - Scapula fracture [Unknown]
  - Nausea [Unknown]
  - Vomiting [Unknown]
